FAERS Safety Report 5234767-X (Version None)
Quarter: 2007Q1

REPORT INFORMATION
  Report Type: 
  Country: None (occurrence: None)
  Receive Date: 20070209
  Receipt Date: 20070129
  Transmission Date: 20070707
  Serious: Yes (Death, Hospitalization, Other)
  Sender: FDA-Public Use
  Company Number: US-PFIZER INC-2006112873

PATIENT
  Sex: Female
  Weight: 59 kg

DRUGS (15)
  1. NEURONTIN [Suspect]
     Indication: MYOCLONIC EPILEPSY
  2. NEURONTIN [Suspect]
     Indication: CONVERSION DISORDER
  3. TEGRETOL [Concomitant]
     Indication: DEPRESSION
     Dates: start: 19970101
  4. SYNTHROID [Concomitant]
     Indication: HYPOTHYROIDISM
     Dates: start: 19970101
  5. KLONOPIN [Concomitant]
     Indication: MYOCLONIC EPILEPSY
  6. REMERON [Concomitant]
     Indication: DEPRESSION
  7. ESTRATEST [Concomitant]
     Indication: HORMONE REPLACEMENT THERAPY
     Dates: start: 19980901
  8. PROVERA [Concomitant]
     Indication: HORMONE REPLACEMENT THERAPY
     Dates: start: 19980601
  9. PROPULSID [Concomitant]
     Indication: GASTROINTESTINAL MOTILITY DISORDER
     Dates: start: 19980901
  10. DILANTIN [Concomitant]
  11. WELLBUTRIN SR [Concomitant]
     Dates: start: 20000501
  12. CYTOMEL [Concomitant]
     Indication: HYPOTHYROIDISM
  13. MACROBID [Concomitant]
     Indication: URINARY TRACT INFECTION
     Dates: start: 19971101
  14. DIAZEPAM [Concomitant]
  15. METHYLPHENIDATE HCL [Concomitant]

REACTIONS (4)
  - ANOXIC ENCEPHALOPATHY [None]
  - COMPLETED SUICIDE [None]
  - DRUG INEFFECTIVE [None]
  - INJURY ASPHYXIATION [None]
